FAERS Safety Report 5397584-6 (Version None)
Quarter: 2007Q3

REPORT INFORMATION
  Report Type: 
  Country: None (occurrence: None)
  Receive Date: 20070726
  Receipt Date: 20070717
  Transmission Date: 20080115
  Serious: Yes (Death, Hospitalization)
  Sender: FDA-Public Use
  Company Number: IE-ROCHE-480322

PATIENT
  Age: 75 Year
  Sex: Female
  Weight: 61 kg

DRUGS (1)
  1. XELODA [Suspect]
     Route: 048
     Dates: start: 20061206

REACTIONS (2)
  - DEATH [None]
  - DEEP VEIN THROMBOSIS [None]
